FAERS Safety Report 17870322 (Version 1)
Quarter: 2020Q2

REPORT INFORMATION
  Report Type: Spontaneous
  Country: AR (occurrence: AR)
  Receive Date: 20200608
  Receipt Date: 20200608
  Transmission Date: 20200714
  Serious: Yes (Other)
  Sender: FDA-Public Use
  Company Number: AR-PFIZER INC-2020221362

PATIENT
  Age: 64 Year
  Sex: Female

DRUGS (2)
  1. XELJANZ XR [Suspect]
     Active Substance: TOFACITINIB CITRATE
     Indication: RHEUMATOID ARTHRITIS
     Dosage: 11 MG, DAILY
     Dates: start: 20191002
  2. XELJANZ XR [Suspect]
     Active Substance: TOFACITINIB CITRATE
     Dosage: UNK, ALTERNATE DAY (ONE DAY ON AND ONE DAY OFF)

REACTIONS (5)
  - Inappropriate schedule of product administration [Unknown]
  - Swelling [Recovering/Resolving]
  - Delirium [Unknown]
  - Lung disorder [Unknown]
  - Infection [Unknown]
